FAERS Safety Report 12109475 (Version 1)
Quarter: 2016Q1

REPORT INFORMATION
  Report Type: Spontaneous
  Country: US (occurrence: None)
  Receive Date: 20160222
  Receipt Date: 20160222
  Transmission Date: 20160526
  Serious: Yes (Hospitalization, Other)
  Sender: FDA-Public Use
  Company Number: None

PATIENT
  Age: 78 Year
  Sex: Male
  Weight: 72.5 kg

DRUGS (1)
  1. RIFAMPIN. [Suspect]
     Active Substance: RIFAMPIN
     Indication: PULMONARY EMBOLISM
     Dosage: APIXABAN
     Dates: start: 20160107, end: 20160206

REACTIONS (2)
  - Deep vein thrombosis [None]
  - Drug level below therapeutic [None]

NARRATIVE: CASE EVENT DATE: 20160206
